FAERS Safety Report 8851854 (Version 2)
Quarter: 2013Q2

REPORT INFORMATION
  Report Type: Spontaneous
  Country: US (occurrence: None)
  Receive Date: 20120426
  Receipt Date: 20120703
  Transmission Date: 20140414
  Serious: Yes (Other)
  Sender: FDA-Public Use
  Company Number: PHEH2011US010638

PATIENT
  Age: 24 Year
  Sex: Female
  Weight: 111.1 kg

DRUGS (1)
  1. GILENYA [Suspect]
     Indication: MULTIPLE SCLEROSIS
     Route: 048
     Dates: start: 20111123

REACTIONS (4)
  - Pulse abnormal [None]
  - Headache [None]
  - Decreased appetite [None]
  - Eructation [None]
